FAERS Safety Report 6782787-6 (Version None)
Quarter: 2010Q2

REPORT INFORMATION
  Report Type: 
  Country: None (occurrence: None)
  Receive Date: 20100621
  Receipt Date: 20100614
  Transmission Date: 20101027
  Serious: Yes (Hospitalization)
  Sender: FDA-Public Use
  Company Number: JP-ABBOTT-10P-087-0633272-00

PATIENT
  Sex: Female

DRUGS (8)
  1. HUMIRA [Suspect]
     Indication: RHEUMATOID ARTHRITIS
     Route: 058
     Dates: start: 20090724, end: 20091126
  2. METHOTREXATE [Concomitant]
     Indication: RHEUMATOID ARTHRITIS
     Dates: end: 20091126
  3. TACROLIMUS [Concomitant]
     Indication: RHEUMATOID ARTHRITIS
     Dates: start: 20100303
  4. LOXOPROFEN SODIUM [Concomitant]
     Indication: RHEUMATOID ARTHRITIS
     Route: 048
  5. REBAMIPIDE [Concomitant]
     Indication: GASTRITIS PROPHYLAXIS
     Route: 048
  6. FOLIC ACID [Concomitant]
     Indication: PROPHYLAXIS
     Route: 048
     Dates: end: 20091126
  7. FOLIC ACID [Concomitant]
     Indication: FOLATE DEFICIENCY
  8. ETIZOLAM [Concomitant]
     Indication: NEUROSIS
     Route: 048
     Dates: start: 20100303

REACTIONS (10)
  - COUGH [None]
  - GASTROENTERITIS [None]
  - HYPERVENTILATION [None]
  - LYMPHADENOPATHY [None]
  - NEUROSIS [None]
  - OROPHARYNGEAL PAIN [None]
  - PALPITATIONS [None]
  - PHARYNGITIS [None]
  - PYREXIA [None]
  - SUFFOCATION FEELING [None]
